FAERS Safety Report 7855117-6 (Version None)
Quarter: 2011Q4

REPORT INFORMATION
  Report Type: 
  Country: None (occurrence: None)
  Receive Date: 20111026
  Receipt Date: 20111018
  Transmission Date: 20120403
  Serious: Yes (Other)
  Sender: FDA-Public Use
  Company Number: PHHY2011VE93413

PATIENT
  Sex: Female

DRUGS (4)
  1. BRUGESIC [Concomitant]
     Indication: PAIN
     Dosage: 1 PILL ONCE A DAY
  2. COMBAREN [Concomitant]
     Indication: PAIN
     Dosage: 1 DF (50 MG/50 MG) 1 PILL ONCE A DAY
     Route: 048
  3. ZOLEDRONOC ACID [Suspect]
     Indication: OSTEOPOROSIS
     Dosage: 5 MG, UNK
     Route: 042
     Dates: start: 20100501
  4. ANAESTHETICS [Concomitant]

REACTIONS (7)
  - GUN SHOT WOUND [None]
  - FALL [None]
  - FEELING ABNORMAL [None]
  - PATIENT-DEVICE INCOMPATIBILITY [None]
  - MYALGIA [None]
  - LIMB INJURY [None]
  - ARTHRALGIA [None]
